FAERS Safety Report 5503586-9 (Version None)
Quarter: 2007Q4

REPORT INFORMATION
  Report Type: 
  Country: None (occurrence: None)
  Receive Date: 20071029
  Receipt Date: 20071019
  Transmission Date: 20080405
  Serious: Yes (Death, Hospitalization, Other)
  Sender: FDA-Public Use
  Company Number: 056-C5013-06110830

PATIENT
  Age: 75 Year
  Sex: Male
  Weight: 60 kg

DRUGS (5)
  1. CC-5013 (LENALIDOMIDE) (CAPSULES) [Suspect]
     Indication: MULTIPLE MYELOMA
     Dosage: 25 MG, DAILY 21 DAYS EVERY MONTH, ORAL; 25 MG, DAILY 21 DAYS EVERY MONTH, ORAL
     Route: 048
     Dates: start: 20060701, end: 20060801
  2. CC-5013 (LENALIDOMIDE) (CAPSULES) [Suspect]
     Indication: MULTIPLE MYELOMA
     Dosage: 25 MG, DAILY 21 DAYS EVERY MONTH, ORAL; 25 MG, DAILY 21 DAYS EVERY MONTH, ORAL
     Route: 048
     Dates: start: 20060901, end: 20060920
  3. DEXAMETHASONE TAB [Suspect]
     Indication: MULTIPLE MYELOMA
     Dosage: 40 MG, DAILY 4 DAYS EVERY MONTH, ORAL; 40 MG, DAILY 4 DAYE EVERY MONTH, ORAL
     Route: 048
     Dates: start: 20060901, end: 20060901
  4. DEXAMETHASONE TAB [Suspect]
     Indication: MULTIPLE MYELOMA
     Dosage: 40 MG, DAILY 4 DAYS EVERY MONTH, ORAL; 40 MG, DAILY 4 DAYE EVERY MONTH, ORAL
     Route: 048
     Dates: start: 20060701
  5. ARANESP [Concomitant]

REACTIONS (4)
  - ACUTE CORONARY SYNDROME [None]
  - ATRIAL FIBRILLATION [None]
  - CEREBRAL HAEMORRHAGE [None]
  - MYOCARDIAL INFARCTION [None]
